FAERS Safety Report 25769624 (Version 1)
Quarter: 2025Q3

REPORT INFORMATION
  Report Type: Spontaneous
  Country: CH (occurrence: CH)
  Receive Date: 20250906
  Receipt Date: 20250906
  Transmission Date: 20251020
  Serious: Yes (Other)
  Sender: AMGEN
  Company Number: CH-AMGEN-CHESP2025172413

PATIENT
  Age: 72 Year
  Sex: Female
  Weight: 38 kg

DRUGS (1)
  1. PROLIA [Suspect]
     Active Substance: DENOSUMAB
     Indication: Osteoporosis
     Dosage: 60 MILLIGRAM, Q6MO
     Route: 058
     Dates: start: 20180116

REACTIONS (2)
  - Withdrawal syndrome [Unknown]
  - Spinal fracture [Unknown]

NARRATIVE: CASE EVENT DATE: 20240717
